FAERS Safety Report 26138277 (Version 1)
Quarter: 2025Q4

REPORT INFORMATION
  Report Type: Spontaneous
  Country: US (occurrence: US)
  Receive Date: 20251210
  Receipt Date: 20251210
  Transmission Date: 20260118
  Serious: No
  Sender: AUROBINDO
  Company Number: US-AUROBINDO-AUR-APL-2025-026142

PATIENT
  Age: 83 Year
  Sex: Male
  Weight: 81.64 kg

DRUGS (1)
  1. FINASTERIDE [Suspect]
     Active Substance: FINASTERIDE
     Indication: Prostatomegaly
     Dosage: 1 DOSAGE FORM, DAILY

REACTIONS (5)
  - Breast pain [Not Recovered/Not Resolved]
  - Gynaecomastia [Not Recovered/Not Resolved]
  - Illness [Not Recovered/Not Resolved]
  - Nipple pain [Not Recovered/Not Resolved]
  - Therapy cessation [Not Recovered/Not Resolved]
